FAERS Safety Report 20735837 (Version 2)
Quarter: 2024Q2

REPORT INFORMATION
  Report Type: Spontaneous
  Country: GB (occurrence: GB)
  Receive Date: 20220421
  Receipt Date: 20240517
  Transmission Date: 20240716
  Serious: Yes (Other)
  Sender: FDA-Public Use
  Company Number: GB-TEVA-2022-GB-2028433

PATIENT
  Age: 66 Year
  Sex: Female

DRUGS (3)
  1. FLUDARABINE [Suspect]
     Active Substance: FLUDARABINE PHOSPHATE
     Indication: Urinary bladder sarcoma
     Dosage: DOSAGE TEXT: TREATMENT COMPLETED
     Route: 065
  2. CYTARABINE\DAUNORUBICIN [Suspect]
     Active Substance: CYTARABINE\DAUNORUBICIN
     Indication: Urinary bladder sarcoma
     Dosage: DOSAGE TEXT: ONE CYCLE OF A LIPOSOMAL FORMULATION OF DAUNORUBICIN AND CYTARABINE, TREATMENT COMPL...
     Route: 065
  3. IDARUBICIN [Suspect]
     Active Substance: IDARUBICIN
     Indication: Urinary bladder sarcoma
     Dosage: DOSAGE TEXT: TREATMENT COMPLETED
     Route: 065

REACTIONS (3)
  - Febrile neutropenia [Recovered/Resolved]
  - Klebsiella sepsis [Recovered/Resolved]
  - Klebsiella infection [Recovered/Resolved]
